APPROVED DRUG PRODUCT: GLYCOPYRROLATE
Active Ingredient: GLYCOPYRROLATE
Strength: 0.2MG/ML
Dosage Form/Route: INJECTABLE;INJECTION
Application: A086947 | Product #001
Applicant: WATSON LABORATORIES INC
Approved: Jun 24, 1983 | RLD: No | RS: No | Type: DISCN